FAERS Safety Report 9591380 (Version 1)
Quarter: 2013Q4

REPORT INFORMATION
  Report Type: Spontaneous
  Country: US (occurrence: US)
  Receive Date: 20131003
  Receipt Date: 20131003
  Transmission Date: 20140711
  Serious: No
  Sender: FDA-Public Use
  Company Number: US-AMGEN-USASP2012080174

PATIENT
  Age: 65 Year
  Sex: Female
  Weight: 49 kg

DRUGS (8)
  1. ENBREL [Suspect]
     Indication: RHEUMATOID ARTHRITIS
     Dosage: 50 MG, QWK
     Route: 058
  2. METHOTREXATE [Concomitant]
     Dosage: 2.5 MG, UNK
     Route: 048
  3. PREDNISONE [Concomitant]
     Dosage: 5 MG, UNK
     Route: 048
  4. PLAQUENIL                          /00072602/ [Concomitant]
     Dosage: 200 MG, UNK
     Route: 048
  5. LYRICA [Concomitant]
     Dosage: 100 MG, UNK
     Route: 048
  6. LUMIGAN [Concomitant]
     Dosage: O.01 % OP
  7. ASPIRIN [Concomitant]
     Dosage: 81 MG, UNK
     Route: 048
  8. LEUCOVORIN                         /00566701/ [Concomitant]
     Dosage: 200 MG, UNK
     Route: 058

REACTIONS (1)
  - Weight decreased [Unknown]
